FAERS Safety Report 25356146 (Version 1)
Quarter: 2025Q2

REPORT INFORMATION
  Report Type: Report from Study
  Country: GB (occurrence: GB)
  Receive Date: 20250525
  Receipt Date: 20250525
  Transmission Date: 20250716
  Serious: Yes (Other)
  Sender: JOHNSON AND JOHNSON
  Company Number: GB-JNJFOC-20250529067

PATIENT
  Sex: Female

DRUGS (1)
  1. SIMPONI [Suspect]
     Active Substance: GOLIMUMAB
     Indication: Rheumatoid arthritis
     Dosage: DELIVERY START DATE: 13-NOV-2024, DOSE: SIMPONI 50MG/0.5ML SOLUTION FOR INJECTION PRE-FILLED PENS,1
     Route: 058

REACTIONS (3)
  - Rheumatoid arthritis [Unknown]
  - Nasopharyngitis [Unknown]
  - Product dose omission issue [Unknown]
